FAERS Safety Report 8857635 (Version 2)
Quarter: 2012Q4

REPORT INFORMATION
  Report Type: 
  Country: CA (occurrence: CA)
  Receive Date: 20121024
  Receipt Date: 20121031
  Transmission Date: 20130627
  Serious: Yes (Hospitalization)
  Sender: FDA-Public Use
  Company Number: CA-B.I. PHARMACEUTICALS,INC./RIDGEFIELD-2012-CN-02160CN

PATIENT
  Age: 77 Year
  Sex: Female

DRUGS (11)
  1. PRADAX [Suspect]
     Indication: ATRIAL FIBRILLATION
     Dosage: 220 mg
     Dates: start: 2011
  2. PRADAX [Suspect]
     Dosage: 150 mg
  3. ADVAIR [Concomitant]
     Indication: LUNG DISORDER
  4. ATROVENT [Concomitant]
     Indication: LUNG DISORDER
  5. FUROSEMIDE [Concomitant]
  6. LIPITOR [Concomitant]
  7. LYRICA [Concomitant]
  8. FEMARA [Concomitant]
     Indication: BREAST CANCER METASTATIC
  9. SYNTHROID [Concomitant]
     Indication: HYPOTHYROIDISM
  10. METOPROLOL [Concomitant]
  11. SPIRIVA [Concomitant]

REACTIONS (4)
  - Cerebral haemorrhage [Recovered/Resolved]
  - Brain neoplasm [Recovered/Resolved]
  - Dysarthria [Unknown]
  - Glomerular filtration rate decreased [Unknown]
